FAERS Safety Report 14682599 (Version 2)
Quarter: 2018Q2

REPORT INFORMATION
  Report Type: Spontaneous
  Country: US (occurrence: US)
  Receive Date: 20180327
  Receipt Date: 20180404
  Transmission Date: 20180711
  Serious: No
  Sender: FDA-Public Use
  Company Number: US-TEVA-2018-US-872567

PATIENT
  Age: 34 Year
  Sex: Female

DRUGS (4)
  1. ARMODAFINIL. [Suspect]
     Active Substance: ARMODAFINIL
     Indication: HYPERSOMNIA
     Route: 065
  2. NUVIGIL [Suspect]
     Active Substance: ARMODAFINIL
     Indication: DEPRESSION
     Dosage: ONE OR ONE-HALF TABLET MONDAY THROUGH FRIDAY
     Route: 065
  3. NUVIGIL [Suspect]
     Active Substance: ARMODAFINIL
     Indication: HYPERSOMNIA
  4. WELLBUTRIN [Concomitant]
     Active Substance: BUPROPION HYDROCHLORIDE
     Route: 065

REACTIONS (4)
  - Product use in unapproved indication [Unknown]
  - Drug effect decreased [Unknown]
  - Product substitution issue [Unknown]
  - Wrong technique in product usage process [Unknown]
